FAERS Safety Report 8799461 (Version 1)
Quarter: 2012Q4

REPORT INFORMATION
  Report Type: 
  Country: IT (occurrence: IT)
  Receive Date: 20120919
  Receipt Date: 20120919
  Transmission Date: 20130627
  Serious: Yes (Hospitalization)
  Sender: FDA-Public Use
  Company Number: IT-BAYER-2012-096954

PATIENT
  Age: 45 Year
  Sex: Female

DRUGS (6)
  1. CARDIOASPIRIN [Suspect]
     Indication: POSTOPERATIVE CARE
     Dosage: 100 mg, QD
     Route: 048
     Dates: start: 20120428, end: 20120505
  2. OMEPRAZOLE [Concomitant]
     Dosage: Daily dose 20 mg
     Route: 048
     Dates: start: 20120428
  3. OMEPRAZOLE [Concomitant]
     Dosage: Daily dose 20 mg
  4. PLAVIX [Concomitant]
     Dosage: Daily dose 75 mg
     Route: 048
     Dates: start: 20120428
  5. CLEXANE [Concomitant]
     Dosage: Daily dose 1 DF
     Route: 058
     Dates: start: 20120428
  6. BEROCCA [Concomitant]
     Dosage: Daily dose 1 DF
     Route: 048
     Dates: start: 20120428

REACTIONS (1)
  - Rash papular [Recovered/Resolved]
